FAERS Safety Report 21228663 (Version 1)
Quarter: 2022Q3

REPORT INFORMATION
  Report Type: Spontaneous
  Country: US (occurrence: US)
  Receive Date: 20220818
  Receipt Date: 20220818
  Transmission Date: 20221027
  Serious: Yes (Death, Other)
  Sender: FDA-Public Use
  Company Number: US-SA-SAC20220817001505

PATIENT
  Age: 64 Year
  Sex: Female

DRUGS (1)
  1. ZANTAC [Suspect]
     Active Substance: RANITIDINE HYDROCHLORIDE
     Dosage: UNKNOWN AT THIS TIME, QD
     Dates: start: 200801, end: 201812

REACTIONS (5)
  - Colorectal cancer [Fatal]
  - Gastrointestinal carcinoma [Fatal]
  - Hepatic cancer [Fatal]
  - Small intestine carcinoma [Fatal]
  - Anal cancer [Fatal]

NARRATIVE: CASE EVENT DATE: 20180901
